FAERS Safety Report 10036445 (Version 3)
Quarter: 2014Q2

REPORT INFORMATION
  Report Type: Report from Study
  Country: FR (occurrence: FR)
  Receive Date: 20140326
  Receipt Date: 20140403
  Transmission Date: 20141212
  Serious: Yes (Hospitalization, Other)
  Sender: FDA-Public Use
  Company Number: FR-ROCHE-1164813

PATIENT
  Age: 78 Year
  Sex: Female

DRUGS (15)
  1. RITUXIMAB [Suspect]
     Indication: RHEUMATOID ARTHRITIS
     Route: 042
     Dates: start: 20090326
  2. RITUXIMAB [Suspect]
     Route: 042
     Dates: start: 20090409
  3. RITUXIMAB [Suspect]
     Route: 042
     Dates: start: 20100527
  4. RITUXIMAB [Suspect]
     Route: 042
     Dates: start: 20100610
  5. RITUXIMAB [Suspect]
     Route: 042
     Dates: start: 20111114
  6. RITUXIMAB [Suspect]
     Route: 042
     Dates: start: 20111128
  7. RITUXIMAB [Suspect]
     Route: 042
     Dates: start: 20120531
  8. RITUXIMAB [Suspect]
     Route: 042
     Dates: start: 20120614
  9. RITUXIMAB [Suspect]
     Route: 042
     Dates: start: 20121217
  10. RITUXIMAB [Suspect]
     Route: 042
     Dates: start: 20130102
  11. METHOTREXATE [Concomitant]
     Route: 065
     Dates: start: 20100527
  12. CORTANCYL [Concomitant]
     Route: 065
     Dates: start: 20090409
  13. CORTANCYL [Concomitant]
     Route: 065
     Dates: start: 20111114
  14. CORTANCYL [Concomitant]
     Route: 065
     Dates: start: 20100527
  15. CORTANCYL [Concomitant]
     Route: 065
     Dates: start: 20121217

REACTIONS (14)
  - Genitourinary tract infection [Unknown]
  - Spinal fracture [Unknown]
  - Joint arthroplasty [Recovered/Resolved]
  - Hypertension [Unknown]
  - Osteoarthritis [Unknown]
  - Escherichia urinary tract infection [Recovered/Resolved]
  - Portal hypertensive gastropathy [Recovered/Resolved]
  - Depression [Not Recovered/Not Resolved]
  - Wound necrosis [Recovered/Resolved]
  - Urinary tract infection [Recovered/Resolved]
  - Seborrhoeic keratosis [Recovered/Resolved]
  - Infusion related reaction [Recovered/Resolved]
  - Urinary tract infection [Not Recovered/Not Resolved]
  - Leukocytosis [Not Recovered/Not Resolved]
